FAERS Safety Report 7910454-1 (Version None)
Quarter: 2011Q4

REPORT INFORMATION
  Report Type: 
  Country: None (occurrence: None)
  Receive Date: 20111111
  Receipt Date: 20110411
  Transmission Date: 20120403
  Serious: No
  Sender: FDA-Public Use
  Company Number: US-BAYER-2011-071597

PATIENT
  Sex: Female
  Weight: 52 kg

DRUGS (2)
  1. PHILLIPS' LAXATIVE DIETARY SUPPLEMENT [Suspect]
     Indication: LAXATIVE SUPPORTIVE CARE
     Dosage: 2 TABLETS ONCE DAILY
     Route: 048
     Dates: start: 20110401
  2. ASPIRIN [Concomitant]
     Route: 048

REACTIONS (1)
  - NO ADVERSE EVENT [None]
